FAERS Safety Report 4713861-3 (Version None)
Quarter: 2005Q3

REPORT INFORMATION
  Report Type: 
  Country: None (occurrence: None)
  Receive Date: 20050713
  Receipt Date: 20050628
  Transmission Date: 20060218
  Serious: Yes (Other)
  Sender: FDA-Public Use
  Company Number: USA050699566

PATIENT
  Age: 62 Year
  Sex: Male
  Weight: 114 kg

DRUGS (5)
  1. CYMBALTA [Suspect]
     Indication: DIABETIC NEUROPATHY
     Dosage: 60 MG DAY
     Dates: start: 20050520, end: 20050601
  2. AMIODARONE [Concomitant]
  3. COUMADIN [Concomitant]
  4. ALTACE [Concomitant]
  5. ADVAIR DISKUS 100/50 [Concomitant]

REACTIONS (9)
  - ASTHENIA [None]
  - COGNITIVE DISORDER [None]
  - DIZZINESS [None]
  - DYSSTASIA [None]
  - FALL [None]
  - FATIGUE [None]
  - HYPERSENSITIVITY [None]
  - MOTOR DYSFUNCTION [None]
  - TREMOR [None]
